FAERS Safety Report 21449535 (Version 3)
Quarter: 2023Q2

REPORT INFORMATION
  Report Type: Spontaneous
  Country: US (occurrence: US)
  Receive Date: 20221013
  Receipt Date: 20230508
  Transmission Date: 20230722
  Serious: Yes (Hospitalization, Other)
  Sender: FDA-Public Use
  Company Number: US-MLMSERVICE-20220914-3793172-1

PATIENT
  Age: 15 Year
  Sex: Female

DRUGS (7)
  1. VENLAFAXINE [Suspect]
     Active Substance: VENLAFAXINE HYDROCHLORIDE
     Indication: Post-traumatic stress disorder
     Dosage: 75 MILLIGRAM, DAILY
     Route: 065
     Dates: start: 202102, end: 202108
  2. VENLAFAXINE [Suspect]
     Active Substance: VENLAFAXINE HYDROCHLORIDE
     Indication: Post-traumatic stress disorder
     Dosage: 112.5 MILLIGRAM, ONCE A DAY
     Route: 065
     Dates: start: 202108
  3. VENLAFAXINE [Suspect]
     Active Substance: VENLAFAXINE HYDROCHLORIDE
     Dosage: 75 MILLIGRAM, ONCE A DAY
     Route: 065
     Dates: start: 202111
  4. DEXTROAMPHETAMINE [Concomitant]
     Active Substance: DEXTROAMPHETAMINE
     Indication: Product used for unknown indication
     Dosage: 5 MILLIGRAM, ONCE A DAY
     Route: 065
  5. DEXTROAMPHETAMINE [Concomitant]
     Active Substance: DEXTROAMPHETAMINE
     Dosage: 15 MILLIGRAM, ONCE A DAY
     Route: 065
  6. AMPHETAMINE [Concomitant]
     Active Substance: AMPHETAMINE
     Indication: Product used for unknown indication
     Dosage: 5 MILLIGRAM, ONCE A DAY
     Route: 065
  7. AMPHETAMINE [Concomitant]
     Active Substance: AMPHETAMINE
     Dosage: 15 MILLIGRAM, ONCE A DAY
     Route: 065

REACTIONS (2)
  - Hyperprolactinaemia [Unknown]
  - Galactorrhoea [Recovered/Resolved]

NARRATIVE: CASE EVENT DATE: 20210101
